FAERS Safety Report 7921969-4 (Version None)
Quarter: 2011Q4

REPORT INFORMATION
  Report Type: 
  Country: None (occurrence: None)
  Receive Date: 20111117
  Receipt Date: 20111108
  Transmission Date: 20120403
  Serious: Yes (Other)
  Sender: FDA-Public Use
  Company Number: CA-ASTRAZENECA-2011SE67832

PATIENT
  Age: 65 Year
  Sex: Female

DRUGS (3)
  1. SYNTHROID [Concomitant]
  2. SYMBICORT [Suspect]
     Indication: CHRONIC OBSTRUCTIVE PULMONARY DISEASE
     Dosage: 200 MCG, 2 PUFFS TWO TIMES A DAY
     Route: 055
     Dates: start: 20090101
  3. SYMBICORT [Suspect]
     Dosage: 200 MCG, 1 PUFF IN THE MORNING AND 1 PUFF IN THE EVENING
     Route: 055
     Dates: start: 20110901

REACTIONS (4)
  - OSTEOPOROSIS [None]
  - COUGH [None]
  - NASOPHARYNGITIS [None]
  - PURPURA SENILE [None]
